FAERS Safety Report 10452906 (Version 2)
Quarter: 2017Q4

REPORT INFORMATION
  Report Type: Report from Study
  Country: US (occurrence: US)
  Receive Date: 20140915
  Receipt Date: 20171011
  Transmission Date: 20180320
  Serious: No
  Sender: FDA-Public Use
  Company Number: US-ALEXION-A201305694

PATIENT
  Sex: Female

DRUGS (1)
  1. SOLIRIS [Suspect]
     Active Substance: ECULIZUMAB
     Indication: PAROXYSMAL NOCTURNAL HAEMOGLOBINURIA
     Route: 042

REACTIONS (1)
  - No adverse event [Unknown]
